FAERS Safety Report 19033531 (Version 1)
Quarter: 2021Q1

REPORT INFORMATION
  Report Type: Report from Study
  Country: None (occurrence: US)
  Receive Date: 20210320
  Receipt Date: 20210320
  Transmission Date: 20210420
  Serious: Yes (Hospitalization, Other)
  Sender: FDA-Public Use
  Company Number: US-ABBVIE-21K-163-3817296-00

PATIENT
  Age: 31 Year
  Sex: Male

DRUGS (2)
  1. HUMIRA [Suspect]
     Active Substance: ADALIMUMAB
     Indication: CROHN^S DISEASE
     Dosage: DAY 1
     Route: 058
     Dates: start: 202103, end: 202103
  2. HUMIRA [Suspect]
     Active Substance: ADALIMUMAB
     Indication: CROHN^S DISEASE
     Route: 058
     Dates: start: 2020, end: 202012

REACTIONS (13)
  - Malaise [Unknown]
  - Loss of personal independence in daily activities [Unknown]
  - Intestinal obstruction [Unknown]
  - Fear [Unknown]
  - Diarrhoea [Recovering/Resolving]
  - Sneezing [Unknown]
  - Cough [Recovering/Resolving]
  - Product prescribing error [Unknown]
  - Weight decreased [Unknown]
  - Anxiety [Unknown]
  - Sleep disorder [Recovering/Resolving]
  - Sepsis [Unknown]
  - Depression [Unknown]

NARRATIVE: CASE EVENT DATE: 2020
